FAERS Safety Report 25188902 (Version 1)
Quarter: 2025Q2

REPORT INFORMATION
  Report Type: Spontaneous
  Country: US (occurrence: None)
  Receive Date: 20250410
  Receipt Date: 20250410
  Transmission Date: 20250716
  Serious: Yes (Hospitalization)
  Sender: FDA-CTU
  Company Number: None

PATIENT
  Sex: Female

DRUGS (3)
  1. MYCOPHENOLIC ACID [Suspect]
     Active Substance: MYCOPHENOLIC ACID
     Indication: Renal transplant
     Dosage: FREQUENCY : DAILY;?
     Route: 048
     Dates: start: 20220607
  2. KIDNEY TRANSPLANT STATUS [Concomitant]
  3. NOVOLOG [Concomitant]
     Active Substance: INSULIN ASPART

REACTIONS (8)
  - Lacrimation increased [None]
  - Rhinorrhoea [None]
  - Sputum discoloured [None]
  - Illness [None]
  - Diarrhoea [None]
  - Cough [None]
  - Vomiting [None]
  - Hypersensitivity [None]
